FAERS Safety Report 9009628 (Version 1)
Quarter: 2013Q1

REPORT INFORMATION
  Report Type: Spontaneous
  Country: CZ (occurrence: CZ)
  Receive Date: 20130110
  Receipt Date: 20130110
  Transmission Date: 20140127
  Serious: Yes (Other)
  Sender: FDA-Public Use
  Company Number: CZ-PFIZER INC-2012295698

PATIENT
  Age: 64 Year
  Sex: Female
  Weight: 110 kg

DRUGS (15)
  1. SOLU-MEDROL [Suspect]
     Indication: MULTIPLE SCLEROSIS RELAPSE
     Dosage: 500 MG, 1X/DAY
     Route: 042
     Dates: start: 20111005, end: 20111007
  2. TENORMIN [Concomitant]
     Dosage: 100 UNK, 1X/DAY
  3. PRENESSA [Concomitant]
     Dosage: 4 UNK, 1X/DAY IN THE MORNING
  4. PRESTARIUM NEO [Concomitant]
     Dosage: 5 UNK, 1X/DAY IN THE EVENING
  5. ORCAL [Concomitant]
     Dosage: 5 UNK, 1X/DAY IN THE EVENING
  6. NORMAGLYC [Concomitant]
     Dosage: 500 UNK, 2X/DAY
  7. NEURONTIN [Concomitant]
     Dosage: 300 UNK, 3X/DAY
  8. LACIDOFIL [Concomitant]
     Dosage: UNK
  9. SMECTA ^DAE WOONG^ [Concomitant]
     Dosage: UNK
  10. ATARALGIN [Concomitant]
     Dosage: UNK
  11. CLEXANE [Concomitant]
     Dosage: 0.4 UNK, 1X/DAY
     Route: 058
  12. HELICID [Concomitant]
     Dosage: 40 UNK, 1X/DAY
     Route: 042
  13. MESOCAIN [Concomitant]
     Dosage: UNK
     Dates: start: 20111002, end: 20111002
  14. KETONAL [Concomitant]
     Dosage: UNK
     Route: 030
     Dates: start: 20111002, end: 20111002
  15. MYDOCALM ^GEDEON RICHTER^ [Concomitant]
     Dosage: UNK
     Route: 048
     Dates: start: 20111002

REACTIONS (3)
  - Hallucination, visual [Recovered/Resolved]
  - Urinary tract infection [Unknown]
  - Dyspnoea [Unknown]
